FAERS Safety Report 22292706 (Version 1)
Quarter: 2023Q2

REPORT INFORMATION
  Report Type: Report from Study
  Country: DE (occurrence: DE)
  Receive Date: 20230508
  Receipt Date: 20230508
  Transmission Date: 20230721
  Serious: Yes (Death, Hospitalization, Other)
  Sender: FDA-Public Use
  Company Number: DE-ROCHE-3339287

PATIENT
  Age: 58 Year
  Sex: Male

DRUGS (8)
  1. UNSPECIFIED INGREDIENT [Suspect]
     Active Substance: UNSPECIFIED INGREDIENT
     Indication: Rheumatoid arthritis
     Dosage: UNK
     Route: 065
  2. METHOTREXATE [Suspect]
     Active Substance: METHOTREXATE
     Indication: Rheumatoid arthritis
     Dosage: 20 MG
     Route: 065
  3. METHOTREXATE [Suspect]
     Active Substance: METHOTREXATE
     Dosage: 15 MG
     Route: 065
  4. TOCILIZUMAB [Suspect]
     Active Substance: TOCILIZUMAB
     Indication: Rheumatoid arthritis
     Dosage: 800 MG
     Route: 065
     Dates: start: 201701, end: 201705
  5. ABATACEPT [Suspect]
     Active Substance: ABATACEPT
     Indication: Rheumatoid arthritis
     Dosage: 125 MG
     Route: 065
     Dates: start: 201601
  6. ABATACEPT [Suspect]
     Active Substance: ABATACEPT
     Dosage: 1000 MG
     Route: 065
     Dates: end: 201612
  7. BARICITINIB [Suspect]
     Active Substance: BARICITINIB
     Indication: Rheumatoid arthritis
     Dosage: 4 MG
     Route: 065
     Dates: start: 201705, end: 201805
  8. BARICITINIB [Suspect]
     Active Substance: BARICITINIB
     Dosage: 4 MG
     Route: 065
     Dates: start: 201806, end: 202201

REACTIONS (8)
  - Sepsis [Fatal]
  - Pneumocystis jirovecii pneumonia [Fatal]
  - Multiple organ dysfunction syndrome [Fatal]
  - Cardiac failure [Fatal]
  - Cardiogenic shock [Fatal]
  - Pulmonary fibrosis [Unknown]
  - Gastroenteritis [Unknown]
  - Bursitis [Unknown]

NARRATIVE: CASE EVENT DATE: 20220323
